FAERS Safety Report 5780587-7 (Version None)
Quarter: 2008Q2

REPORT INFORMATION
  Report Type: 
  Country: None (occurrence: None)
  Receive Date: 20080620
  Receipt Date: 20080610
  Transmission Date: 20081010
  Serious: Yes (Hospitalization)
  Sender: FDA-Public Use
  Company Number: ZA-ELI_LILLY_AND_COMPANY-ZA200806001957

PATIENT
  Sex: Male

DRUGS (9)
  1. HUMALOG [Suspect]
     Indication: TYPE 2 DIABETES MELLITUS
     Dosage: 40 U, EACH MORNING
     Route: 058
     Dates: start: 20080423, end: 20080601
  2. HUMALOG [Suspect]
     Dosage: 40 U, EACH EVENING
     Route: 058
     Dates: start: 20080423, end: 20080601
  3. HUMALOG MIX 75/25 [Suspect]
     Indication: TYPE 2 DIABETES MELLITUS
  4. HUMALOG MIX 75/25 [Suspect]
     Dosage: 40 U, EACH MORNING
     Route: 058
     Dates: start: 20080601, end: 20080601
  5. HUMALOG MIX 75/25 [Suspect]
     Dosage: 40 U, EACH EVENING
     Route: 058
     Dates: start: 20080601, end: 20080601
  6. HUMALOG MIX 75/25 [Suspect]
     Dosage: 46 U, EACH MORNING
     Route: 058
     Dates: start: 20080601
  7. HUMALOG MIX 75/25 [Suspect]
     Dosage: 46 U, EACH EVENING
     Route: 058
     Dates: start: 20080601
  8. MICARDIS [Concomitant]
     Indication: HYPERTENSION
     Dosage: UNK, UNKNOWN
     Route: 048
     Dates: start: 20070101
  9. VITAMINS WITH MINERALS [Concomitant]
     Indication: VITAMIN SUPPLEMENTATION
     Dosage: UNK, UNKNOWN
     Route: 048

REACTIONS (4)
  - BLOOD GLUCOSE INCREASED [None]
  - DRUG DISPENSING ERROR [None]
  - INFLUENZA [None]
  - KETOACIDOSIS [None]
